FAERS Safety Report 25163407 (Version 1)
Quarter: 2025Q2

REPORT INFORMATION
  Report Type: Spontaneous
  Country: US (occurrence: US)
  Receive Date: 20250404
  Receipt Date: 20250404
  Transmission Date: 20250716
  Serious: No
  Sender: ALEXION PHARMACEUTICALS
  Company Number: US-AstraZeneca-CH-00840308A

PATIENT

DRUGS (1)
  1. FARXIGA [Suspect]
     Active Substance: DAPAGLIFLOZIN PROPANEDIOL

REACTIONS (8)
  - Somnambulism [Unknown]
  - Weight decreased [Unknown]
  - Fatigue [Unknown]
  - Skin burning sensation [Unknown]
  - Inability to afford medication [Unknown]
  - Prostatitis [Unknown]
  - Urinary tract infection [Unknown]
  - Pollakiuria [Unknown]
